FAERS Safety Report 20183348 (Version 1)
Quarter: 2021Q4

REPORT INFORMATION
  Report Type: Spontaneous
  Country: US (occurrence: US)
  Receive Date: 20211214
  Receipt Date: 20211214
  Transmission Date: 20220304
  Serious: Yes (Death, Hospitalization)
  Sender: FDA-Public Use
  Company Number: US-ABBVIE-21K-163-3983994-00

PATIENT
  Sex: Male

DRUGS (1)
  1. IMBRUVICA [Suspect]
     Active Substance: IBRUTINIB
     Indication: Chronic lymphocytic leukaemia
     Route: 048

REACTIONS (6)
  - Cerebral haemorrhage [Fatal]
  - Atrial fibrillation [Unknown]
  - Pneumonia [Unknown]
  - Eye oedema [Unknown]
  - Arthralgia [Unknown]
  - Insomnia [Unknown]
